FAERS Safety Report 10364044 (Version 1)
Quarter: 2014Q3

REPORT INFORMATION
  Report Type: Spontaneous
  Country: US (occurrence: US)
  Receive Date: 20140806
  Receipt Date: 20140806
  Transmission Date: 20150326
  Serious: Yes (Hospitalization)
  Sender: FDA-Public Use
  Company Number: US-AMGEN-USASP2014057648

PATIENT
  Sex: Female

DRUGS (4)
  1. METHYLPREDNISOLONE [Concomitant]
     Active Substance: METHYLPREDNISOLONE
  2. BENADRYL [Concomitant]
     Active Substance: DIPHENHYDRAMINE HYDROCHLORIDE
  3. PEPCID                             /00305201/ [Concomitant]
  4. PROLIA [Suspect]
     Active Substance: DENOSUMAB
     Indication: PRODUCT USED FOR UNKNOWN INDICATION
     Dosage: UNK
     Route: 065
     Dates: start: 20140702

REACTIONS (8)
  - Swelling face [Unknown]
  - Erythema [Unknown]
  - Angioedema [Unknown]
  - Pruritus [Unknown]
  - Swollen tongue [Unknown]
  - Lip exfoliation [Unknown]
  - Itching scar [Unknown]
  - Anaphylactic reaction [Unknown]
